FAERS Safety Report 6448792-4 (Version None)
Quarter: 2009Q4

REPORT INFORMATION
  Report Type: 
  Country: None (occurrence: None)
  Receive Date: 20091120
  Receipt Date: 20091111
  Transmission Date: 20100525
  Serious: Yes (Other)
  Sender: FDA-Public Use
  Company Number: PHHY2008CA32653

PATIENT
  Sex: Female

DRUGS (2)
  1. ACLASTA [Suspect]
     Indication: OSTEOPOROSIS
     Dosage: UNK
     Dates: start: 20081203
  2. BENADRYL [Concomitant]
     Dosage: 25 MG

REACTIONS (7)
  - HAEMATOMA [None]
  - HEADACHE [None]
  - JOINT SWELLING [None]
  - PRURITUS [None]
  - RASH MACULAR [None]
  - SKIN EXFOLIATION [None]
  - TENDERNESS [None]
